FAERS Safety Report 6568226-9 (Version None)
Quarter: 2010Q1

REPORT INFORMATION
  Report Type: 
  Country: None (occurrence: None)
  Receive Date: 20100203
  Receipt Date: 20100126
  Transmission Date: 20100710
  Serious: Yes (Hospitalization, Other)
  Sender: FDA-Public Use
  Company Number: US-JNJFOC-20091106037

PATIENT
  Sex: Female

DRUGS (12)
  1. REMICADE [Suspect]
     Indication: RHEUMATOID ARTHRITIS
     Route: 042
     Dates: start: 20091007
  2. REMICADE [Suspect]
     Route: 042
     Dates: start: 20091007
  3. SYNTHROID [Concomitant]
  4. ALLOPURINOL [Concomitant]
  5. DIOVAN [Concomitant]
  6. OXYCODONE [Concomitant]
  7. PREDNISONE [Concomitant]
  8. ACTONEL [Concomitant]
  9. SULFASALAZINE [Concomitant]
  10. VITAMIN D [Concomitant]
     Dosage: 50,000 UNITS EVERY 3 WEEKS
  11. FORADIL [Concomitant]
     Route: 055
  12. IRON SULFATETHIAMIN COMPOUND TAB [Concomitant]

REACTIONS (5)
  - CHEST PAIN [None]
  - DYSPNOEA [None]
  - FLUSHING [None]
  - GASTROOESOPHAGEAL REFLUX DISEASE [None]
  - INFUSION RELATED REACTION [None]
